FAERS Safety Report 6215538-4 (Version None)
Quarter: 2009Q2

REPORT INFORMATION
  Report Type: 
  Country: None (occurrence: None)
  Receive Date: 20090605
  Receipt Date: 20090529
  Transmission Date: 20091009
  Serious: Yes (Other)
  Sender: FDA-Public Use
  Company Number: US-JNJCH-2009015062

PATIENT
  Age: 54 Year
  Sex: Female
  Weight: 57.6 kg

DRUGS (1)
  1. ZYRTEC [Suspect]
     Indication: HYPERSENSITIVITY
     Dosage: TEXT:2 TEASPOONS EVERY 3 HOURS, 5 DOSES/DAY
     Route: 048
     Dates: start: 20090428, end: 20090429

REACTIONS (4)
  - EAR INFECTION [None]
  - HYPERTENSION [None]
  - LIVER DISORDER [None]
  - OVERDOSE [None]
